FAERS Safety Report 7503997-6 (Version None)
Quarter: 2011Q2

REPORT INFORMATION
  Report Type: 
  Country: None (occurrence: None)
  Receive Date: 20110518
  Receipt Date: 20110512
  Transmission Date: 20111010
  Serious: Yes (Other)
  Sender: FDA-Public Use
  Company Number: A0927123A

PATIENT
  Age: 60 Year
  Sex: Male

DRUGS (1)
  1. SODIUM FLUORIDE + POTASSIUM NITRATE TOOTHPASTE (SODIUM FLUORIDE + POTA [Suspect]
     Indication: SENSITIVITY OF TEETH
     Dosage: DENTAL
     Route: 004
     Dates: start: 20110323, end: 20110324

REACTIONS (6)
  - ANKLE FRACTURE [None]
  - DRUG INTERACTION [None]
  - SYNCOPE [None]
  - FALL [None]
  - RIB FRACTURE [None]
  - BLOOD PRESSURE DECREASED [None]
